FAERS Safety Report 24399513 (Version 1)
Quarter: 2024Q4

REPORT INFORMATION
  Report Type: Spontaneous
  Country: PL (occurrence: PL)
  Receive Date: 20241005
  Receipt Date: 20241005
  Transmission Date: 20250114
  Serious: Yes (Hospitalization)
  Sender: ROCHE
  Company Number: PL-ROCHE-10000097401

PATIENT
  Age: 34 Year
  Sex: Female

DRUGS (1)
  1. OCREVUS [Suspect]
     Active Substance: OCRELIZUMAB
     Indication: Relapsing-remitting multiple sclerosis
     Dosage: LAST DOSE: -MAY-2024
     Route: 065
     Dates: start: 20200228

REACTIONS (2)
  - Febrile neutropenia [Recovered/Resolved]
  - Ecthyma [Recovered/Resolved]

NARRATIVE: CASE EVENT DATE: 20240701
